FAERS Safety Report 25505951 (Version 3)
Quarter: 2025Q3

REPORT INFORMATION
  Report Type: Spontaneous
  Country: JP (occurrence: JP)
  Receive Date: 20250702
  Receipt Date: 20250714
  Transmission Date: 20251021
  Serious: Yes (Other)
  Sender: PIERRE FABRE MEDICAMENT
  Company Number: JP-PFM-2025-03095

PATIENT
  Sex: Male
  Weight: 3 kg

DRUGS (4)
  1. PROPRANOLOL [Suspect]
     Active Substance: PROPRANOLOL HYDROCHLORIDE
     Indication: Supraventricular tachycardia
  2. PROPRANOLOL [Suspect]
     Active Substance: PROPRANOLOL HYDROCHLORIDE
     Indication: Off label use
  3. LANDIOLOL [Suspect]
     Active Substance: LANDIOLOL
     Indication: Sinus rhythm
     Route: 065
  4. LANDIOLOL [Suspect]
     Active Substance: LANDIOLOL
     Route: 065

REACTIONS (8)
  - Necrotising enterocolitis neonatal [Unknown]
  - Intestinal perforation [Unknown]
  - Supraventricular tachycardia [Recovered/Resolved]
  - Disease recurrence [Recovered/Resolved]
  - Hypotension [Unknown]
  - Product administered to patient of inappropriate age [Unknown]
  - Product use in unapproved indication [Unknown]
  - Off label use [Unknown]
